FAERS Safety Report 7816737-8 (Version None)
Quarter: 2011Q4

REPORT INFORMATION
  Report Type: 
  Country: None (occurrence: None)
  Receive Date: 20111017
  Receipt Date: 20111013
  Transmission Date: 20120403
  Serious: Yes (Death)
  Sender: FDA-Public Use
  Company Number: JP-B.I. PHARMACEUTICALS,INC./RIDGEFIELD-2011-BP-22886NB

PATIENT
  Sex: Female
  Weight: 62 kg

DRUGS (10)
  1. CIBENOL [Concomitant]
     Indication: CARDIOVERSION
     Dosage: 100 MG
     Route: 048
     Dates: start: 20110422, end: 20110926
  2. AMLODIPINE [Concomitant]
     Indication: HYPERTENSION
     Dosage: 5 MG
     Route: 048
     Dates: start: 20100519, end: 20110926
  3. CONIEL [Concomitant]
     Indication: HYPERTENSION
     Dosage: 8 MG
     Route: 065
     Dates: start: 20060802, end: 20110926
  4. PRADAXA [Suspect]
     Indication: ATRIAL FIBRILLATION
  5. TENORMIN [Concomitant]
     Indication: HYPERTENSION
     Dosage: 50 MG
     Route: 048
     Dates: start: 20060802, end: 20110926
  6. PRADAXA [Suspect]
     Indication: PROPHYLAXIS
     Dosage: 225 MG
     Route: 048
     Dates: start: 20110416, end: 20110926
  7. ASPIRIN [Suspect]
     Indication: MYOCARDIAL ISCHAEMIA
     Dosage: 100 MG
     Route: 065
     Dates: start: 20090218, end: 20110926
  8. LANIRAPID [Concomitant]
     Indication: HEART RATE
     Dosage: 0.05 MG
     Route: 048
     Dates: start: 20110416, end: 20110926
  9. NEO-MERCAZOLE TAB [Concomitant]
     Indication: HYPERTHYROIDISM
     Dosage: 10 MG
     Route: 065
     Dates: start: 20060802
  10. LIVALO [Concomitant]
     Indication: HYPERCHOLESTEROLAEMIA
     Dosage: 1 MG
     Route: 048
     Dates: start: 20090623, end: 20110926

REACTIONS (1)
  - BRAIN STEM HAEMORRHAGE [None]
